FAERS Safety Report 15211533 (Version 2)
Quarter: 2024Q2

REPORT INFORMATION
  Report Type: Spontaneous
  Country: JP (occurrence: JP)
  Receive Date: 20180729
  Receipt Date: 20240416
  Transmission Date: 20240716
  Serious: Yes (Life-Threatening, Other)
  Sender: FDA-Public Use
  Company Number: JP-MLMSERVICE-20180719-1275095-1

PATIENT
  Age: 66 Year
  Sex: Male

DRUGS (6)
  1. CISPLATIN [Suspect]
     Active Substance: CISPLATIN
     Indication: Oesophageal cancer metastatic
     Dosage: SECOND CYCLE
  2. CISPLATIN [Suspect]
     Active Substance: CISPLATIN
     Dosage: FIRST CYCLE
  3. DOCETAXEL [Suspect]
     Active Substance: DOCETAXEL\DOCETAXEL ANHYDROUS
     Indication: Oesophageal cancer metastatic
     Dosage: SECOND CYCLE
  4. DOCETAXEL [Suspect]
     Active Substance: DOCETAXEL\DOCETAXEL ANHYDROUS
     Dosage: FIRST CYCLE
  5. FLUOROURACIL [Suspect]
     Active Substance: FLUOROURACIL
     Indication: Oesophageal cancer metastatic
     Dosage: SECOND CYCLE
  6. FLUOROURACIL [Suspect]
     Active Substance: FLUOROURACIL
     Dosage: FIRST CYCLE

REACTIONS (7)
  - Leukopenia [Unknown]
  - Neutropenia [Unknown]
  - Oesophagitis [Unknown]
  - Febrile neutropenia [Unknown]
  - Decreased appetite [Unknown]
  - Mucosal disorder [Unknown]
  - Thrombocytopenia [Unknown]
